FAERS Safety Report 11265626 (Version 1)
Quarter: 2015Q3

REPORT INFORMATION
  Report Type: Spontaneous
  Country: US (occurrence: US)
  Receive Date: 20150713
  Receipt Date: 20150713
  Transmission Date: 20151125
  Serious: Yes (Other)
  Sender: FDA-Public Use
  Company Number: US-MPIJNJ-2012-07217

PATIENT
  Age: 75 Year
  Sex: Male
  Weight: 71.66 kg

DRUGS (4)
  1. VELCADE [Suspect]
     Active Substance: BORTEZOMIB
     Dosage: UNK UNK, 1/WEEK
     Route: 042
     Dates: start: 201209, end: 201210
  2. VELCADE [Suspect]
     Active Substance: BORTEZOMIB
     Indication: AMYLOIDOSIS
     Dosage: UNK UNK, 2/WEEK
     Route: 042
     Dates: start: 201106, end: 20111231
  3. FLUDROCORTISONE [Concomitant]
     Active Substance: FLUDROCORTISONE
     Indication: HYPOTENSION
     Dosage: UNK
     Dates: start: 201209
  4. VELCADE [Suspect]
     Active Substance: BORTEZOMIB
     Dosage: UNK UNK, 1/WEEK
     Dates: start: 201210

REACTIONS (6)
  - Orthostatic hypotension [Unknown]
  - Limb discomfort [Unknown]
  - Rash morbilliform [Not Recovered/Not Resolved]
  - Platelet count decreased [Unknown]
  - Hypotension [Not Recovered/Not Resolved]
  - Dizziness [Recovered/Resolved]

NARRATIVE: CASE EVENT DATE: 2011
